FAERS Safety Report 9095583 (Version 1)
Quarter: 2013Q1

REPORT INFORMATION
  Report Type: Spontaneous
  Country: BR (occurrence: BR)
  Receive Date: 20130220
  Receipt Date: 20130220
  Transmission Date: 20140127
  Serious: Yes (Other)
  Sender: FDA-Public Use
  Company Number: PHHY2013BR015845

PATIENT
  Sex: Female
  Weight: 38 kg

DRUGS (3)
  1. ACLASTA [Suspect]
     Indication: OSTEOPOROSIS
     Dosage: 5 MG
     Route: 042
     Dates: start: 2011
  2. ENDRONAX [Concomitant]
     Dosage: UNK UKN, UNK
  3. ADEROGIL [Concomitant]
     Dosage: UNK UKN, UNK

REACTIONS (1)
  - Arrhythmia [Not Recovered/Not Resolved]
